FAERS Safety Report 9629627 (Version 5)
Quarter: 2014Q3

REPORT INFORMATION
  Report Type: Report from Study
  Country: FR (occurrence: FR)
  Receive Date: 20131017
  Receipt Date: 20140829
  Transmission Date: 20150326
  Serious: Yes (Other)
  Sender: FDA-Public Use
  Company Number: FR-ACTELION-A-CH2013-85242

PATIENT
  Age: 11 Year
  Sex: Male
  Weight: 22.7 kg

DRUGS (4)
  1. MODIODAL [Suspect]
     Active Substance: MODAFINIL
     Indication: CATAPLEXY
     Dosage: UNK
     Route: 065
     Dates: start: 20121215
  2. SODIUM VALPROATE [Concomitant]
     Active Substance: VALPROATE SODIUM
  3. ZAVESCA [Suspect]
     Active Substance: MIGLUSTAT
     Indication: NIEMANN-PICK DISEASE
     Dosage: 100 MG, TID
     Route: 048
     Dates: start: 20080710
  4. KEPPRA [Suspect]
     Active Substance: LEVETIRACETAM
     Indication: CONVULSION
     Dosage: UNK
     Route: 065
     Dates: start: 20120510

REACTIONS (8)
  - Weight decreased [Recovered/Resolved with Sequelae]
  - General physical health deterioration [Recovered/Resolved with Sequelae]
  - Stomatitis [Unknown]
  - Stevens-Johnson syndrome [Recovered/Resolved with Sequelae]
  - Skin exfoliation [Recovered/Resolved with Sequelae]
  - Decreased appetite [Recovered/Resolved with Sequelae]
  - Beta haemolytic streptococcal infection [Unknown]
  - Streptococcus test positive [Unknown]

NARRATIVE: CASE EVENT DATE: 2013
